FAERS Safety Report 8311795-9 (Version None)
Quarter: 2012Q2

REPORT INFORMATION
  Report Type: 
  Country: None (occurrence: None)
  Receive Date: 20120425
  Receipt Date: 20120418
  Transmission Date: 20120825
  Serious: Yes (Other)
  Sender: FDA-Public Use
  Company Number: PHHY2012BR034059

PATIENT
  Sex: Female

DRUGS (2)
  1. EXFORGE [Suspect]
     Indication: HYPERTENSION
     Dosage: 1 DF (160/5 MG), DAILY
  2. TENADREN [Suspect]
     Indication: HYPERTENSION
     Dosage: 80 MG, DAILY
     Dates: end: 20120320

REACTIONS (3)
  - AMENORRHOEA [None]
  - MIGRAINE [None]
  - CATARACT [None]
